FAERS Safety Report 9228417 (Version 1)
Quarter: 2013Q1

REPORT INFORMATION
  Report Type: Spontaneous
  Country: US (occurrence: None)
  Receive Date: 20121010
  Receipt Date: 20121010
  Transmission Date: 20140127
  Serious: Yes (Other)
  Sender: FDA-Public Use
  Company Number: ESB_00000336

PATIENT
  Age: 46 Year
  Sex: Female
  Weight: 70.31 kg

DRUGS (3)
  1. LEVETIRACETAM [Suspect]
     Indication: EPILEPSY
     Route: 048
     Dates: start: 20120731
  2. MIRTAZAPINE (UNKNOWN) [Concomitant]
  3. CLONAZEPAM (UNKNOWN) [Concomitant]

REACTIONS (1)
  - Convulsion [None]
